FAERS Safety Report 9421877 (Version 1)
Quarter: 2013Q3

REPORT INFORMATION
  Report Type: Spontaneous
  Country: US (occurrence: None)
  Receive Date: 20130724
  Receipt Date: 20130724
  Transmission Date: 20140515
  Serious: Yes (Other)
  Sender: FDA-Public Use
  Company Number: None

PATIENT
  Age: 47 Year
  Sex: Male
  Weight: 92.99 kg

DRUGS (2)
  1. ZYPREXA [Suspect]
     Indication: MENTAL DISORDER
     Dosage: 10MG 1/DAY ORAL
     Route: 048
     Dates: start: 20130714, end: 20130716
  2. ZYPREXA [Suspect]
     Dosage: 10MG 1/DAY ORAL
     Route: 048
     Dates: start: 20130714, end: 20130716

REACTIONS (11)
  - Dizziness [None]
  - Dry mouth [None]
  - Lethargy [None]
  - Asthenia [None]
  - Fatigue [None]
  - Somnolence [None]
  - Tremor [None]
  - Sedation [None]
  - Somnolence [None]
  - Paraesthesia [None]
  - Dysphagia [None]
